FAERS Safety Report 23531739 (Version 1)
Quarter: 2024Q1

REPORT INFORMATION
  Report Type: Spontaneous
  Country: US (occurrence: US)
  Receive Date: 20240216
  Receipt Date: 20240216
  Transmission Date: 20240410
  Serious: Yes (Other)
  Sender: FDA-Public Use
  Company Number: US-AMGEN-USASP2024027015

PATIENT
  Age: 42 Year
  Sex: Male

DRUGS (10)
  1. PROCRIT [Suspect]
     Active Substance: ERYTHROPOIETIN
     Indication: Anaemia
     Dosage: UNK
     Route: 058
     Dates: start: 20220726
  2. PROCRIT [Suspect]
     Active Substance: ERYTHROPOIETIN
     Dosage: UNK, Q2WK
     Route: 058
  3. PROCRIT [Suspect]
     Active Substance: ERYTHROPOIETIN
     Dosage: EVERY 2-3 WEEKS AS NECESSARY (MOST RECENTLY 40,000 UNITS)
     Route: 058
     Dates: end: 20231214
  4. FILGRASTIM [Suspect]
     Active Substance: FILGRASTIM
     Indication: Neutropenia
     Dosage: UNK
     Route: 065
     Dates: start: 202312
  5. ATORVASTATIN [Concomitant]
     Active Substance: ATORVASTATIN
     Dosage: 40 MILLIGRAM
     Route: 048
  6. OMEGA 3 [Concomitant]
     Active Substance: CAPSAICIN
     Indication: Product used for unknown indication
  7. PREDNISONE [Concomitant]
     Active Substance: PREDNISONE
     Indication: Product used for unknown indication
  8. ASPIRIN [Concomitant]
     Active Substance: ASPIRIN
     Indication: Cerebral infarction
  9. ENOXAPARIN [Concomitant]
     Active Substance: ENOXAPARIN
     Indication: Hemiparesis
     Dosage: 80 MILLIGRAM, Q12H, 120 MILLIGRAM, QD (SINCE APR/2021), 1 MILLIGRAM/KILOGRAM, BID
     Route: 058
  10. ENOXAPARIN [Concomitant]
     Active Substance: ENOXAPARIN
     Indication: Cerebral infarction

REACTIONS (10)
  - Haemoglobin decreased [Unknown]
  - Amaurosis fugax [Unknown]
  - Bronchitis [Recovered/Resolved]
  - Drug ineffective [Unknown]
  - Blood erythropoietin increased [Unknown]
  - Blood urea increased [Unknown]
  - Blood potassium increased [Unknown]
  - Blood creatinine increased [Unknown]
  - High density lipoprotein decreased [Unknown]
  - Blood bilirubin increased [Unknown]

NARRATIVE: CASE EVENT DATE: 20230101
